FAERS Safety Report 14927844 (Version 2)
Quarter: 2018Q2

REPORT INFORMATION
  Report Type: Spontaneous
  Country: US (occurrence: US)
  Receive Date: 20180523
  Receipt Date: 20180531
  Transmission Date: 20180711
  Serious: Yes (Other)
  Sender: FDA-Public Use
  Company Number: US-APOTEX-2018AP013765

PATIENT
  Age: 63 Year
  Sex: Female
  Weight: 99 kg

DRUGS (3)
  1. ZOLPIDEM [Suspect]
     Active Substance: ZOLPIDEM\ZOLPIDEM TARTRATE
     Indication: ANXIETY
     Dosage: UNK
     Route: 065
     Dates: start: 20180401, end: 20180513
  2. FLUTICASONE PROPIONATE NASAL SPRAY USP [Suspect]
     Active Substance: FLUTICASONE PROPIONATE
     Indication: HYPERSENSITIVITY
  3. FLUTICASONE PROPIONATE NASAL SPRAY USP [Suspect]
     Active Substance: FLUTICASONE PROPIONATE
     Indication: SEASONAL ALLERGY
     Dosage: UNK, AS NEEDED
     Route: 045
     Dates: start: 20180401, end: 20180513

REACTIONS (15)
  - Restlessness [Recovering/Resolving]
  - Epistaxis [Recovering/Resolving]
  - Drug ineffective [Unknown]
  - Haemorrhage [Recovering/Resolving]
  - Insomnia [Recovering/Resolving]
  - Fungal infection [Recovering/Resolving]
  - Insulin resistance [Recovering/Resolving]
  - Weight decreased [Recovering/Resolving]
  - Blood glucose increased [Recovering/Resolving]
  - Hypertension [Recovering/Resolving]
  - Dysphonia [Recovering/Resolving]
  - Burning sensation [Recovering/Resolving]
  - Fatigue [Recovering/Resolving]
  - Decreased appetite [Recovering/Resolving]
  - Anxiety [Recovering/Resolving]

NARRATIVE: CASE EVENT DATE: 20180514
